FAERS Safety Report 4705695-0 (Version None)
Quarter: 2005Q2

REPORT INFORMATION
  Report Type: 
  Country: None (occurrence: None)
  Receive Date: 20050629
  Receipt Date: 20050623
  Transmission Date: 20051028
  Serious: Yes (Death, Life-Threatening, Other)
  Sender: FDA-Public Use
  Company Number: 2005092495

PATIENT
  Age: 44 Year
  Sex: Male
  Weight: 183 kg

DRUGS (3)
  1. CELEBREX [Suspect]
     Indication: INFLAMMATION
     Dosage: 200 MG (200 MG, 1 IN 1 D), ORAL
     Route: 048
     Dates: start: 20050527, end: 20050531
  2. DIOSMIN/HESPERIDIN (DIOSMIN, HESPERIDIN) [Suspect]
     Indication: VEIN DISORDER
     Dosage: 450 MG/ 250 MG (1 IN 1 D), ORAL
     Route: 048
     Dates: start: 20050527, end: 20050531
  3. THIAMINE (THIAMINE) [Suspect]
     Indication: ILL-DEFINED DISORDER
     Dosage: SINGLE DOSE), INTRAMUSCULAR
     Route: 030
     Dates: start: 20050527, end: 20050527

REACTIONS (5)
  - ABDOMINAL PAIN UPPER [None]
  - GENERAL PHYSICAL HEALTH DETERIORATION [None]
  - LOSS OF CONSCIOUSNESS [None]
  - RESPIRATORY DISTRESS [None]
  - VOMITING [None]
